FAERS Safety Report 5933237-0 (Version None)
Quarter: 2008Q4

REPORT INFORMATION
  Report Type: 
  Country: None (occurrence: None)
  Receive Date: 20081028
  Receipt Date: 20081016
  Transmission Date: 20090506
  Serious: Yes (Hospitalization, Other)
  Sender: FDA-Public Use
  Company Number: GB-PFIZER INC-2008079727

PATIENT
  Sex: Male

DRUGS (6)
  1. DETRUSITOL XL [Suspect]
     Indication: POLLAKIURIA
     Route: 048
     Dates: start: 20070423
  2. SIMVASTATIN [Concomitant]
     Indication: BLOOD CHOLESTEROL INCREASED
     Route: 048
  3. TAMSULOSIN HCL [Concomitant]
     Indication: URINARY RETENTION
     Route: 048
  4. FINASTERIDE [Concomitant]
     Indication: BENIGN PROSTATIC HYPERPLASIA
     Route: 048
  5. DISOPYRAMIDE [Concomitant]
     Indication: ARRHYTHMIA
     Route: 048
  6. ACETYLSALICYLIC ACID SRT [Concomitant]
     Indication: ARRHYTHMIA
     Route: 048

REACTIONS (6)
  - ASTHENIA [None]
  - CONFUSIONAL STATE [None]
  - CONVULSION [None]
  - GAIT DISTURBANCE [None]
  - MEDICATION ERROR [None]
  - PERIPHERAL COLDNESS [None]
